FAERS Safety Report 9592282 (Version 2)
Quarter: 2013Q4

REPORT INFORMATION
  Report Type: Report from Study
  Country: DE (occurrence: DE)
  Receive Date: 20131004
  Receipt Date: 20131004
  Transmission Date: 20140711
  Serious: Yes (Hospitalization)
  Sender: FDA-Public Use
  Company Number: DE-ROCHE-1283097

PATIENT
  Age: 55 Year
  Sex: Male
  Weight: 93 kg

DRUGS (6)
  1. BEVACIZUMAB [Suspect]
     Indication: SMALL INTESTINE CARCINOMA
     Route: 042
     Dates: start: 20130515
  2. IRINOTECAN HYDROCHLORIDE [Suspect]
     Indication: SMALL INTESTINE CARCINOMA
     Route: 042
     Dates: start: 20081118
  3. 5-FLUOROURACIL [Suspect]
     Indication: SMALL INTESTINE CARCINOMA
     Route: 042
     Dates: start: 20081118
  4. FUROSEMIDE [Concomitant]
     Indication: POLYURIA
     Route: 048
     Dates: start: 20130319
  5. MCP [Concomitant]
     Indication: NAUSEA
     Route: 048
     Dates: start: 20130529
  6. LOPERAMIDE [Concomitant]
     Indication: DIARRHOEA
     Dosage: 4 TABLETS PER DAY
     Route: 048
     Dates: start: 20130529

REACTIONS (2)
  - Asthenia [Recovered/Resolved]
  - Malignant neoplasm progression [Unknown]
